FAERS Safety Report 7126353-1 (Version None)
Quarter: 2010Q4

REPORT INFORMATION
  Report Type: 
  Country: None (occurrence: None)
  Receive Date: 20101129
  Receipt Date: 20101118
  Transmission Date: 20110411
  Serious: Yes (Death, Hospitalization)
  Sender: FDA-Public Use
  Company Number: GB-ROCHE-743408

PATIENT
  Age: 70 Year
  Sex: Female

DRUGS (1)
  1. XELODA [Suspect]
     Dosage: SECOND LINE TREATMENT
     Route: 065
     Dates: start: 20101101

REACTIONS (2)
  - DEATH [None]
  - MALAISE [None]
